FAERS Safety Report 6349456-8 (Version None)
Quarter: 2009Q3

REPORT INFORMATION
  Report Type: 
  Country: None (occurrence: None)
  Receive Date: 20090911
  Receipt Date: 20090901
  Transmission Date: 20100115
  Serious: Yes (Other)
  Sender: FDA-Public Use
  Company Number: US-JNJFOC-20090902835

PATIENT
  Weight: 2.78 kg

DRUGS (3)
  1. REMICADE [Suspect]
     Dosage: MOTHER RESTARTED DRUG- 2 WEEKS POSTPARTUM
  2. REMICADE [Suspect]
  3. REMICADE [Suspect]
     Indication: DRUG EXPOSURE VIA BREAST MILK

REACTIONS (3)
  - DRUG EXPOSURE VIA BREAST MILK [None]
  - MATERNAL DRUGS AFFECTING FOETUS [None]
  - PREMATURE BABY [None]
